FAERS Safety Report 9673272 (Version 1)
Quarter: 2013Q4

REPORT INFORMATION
  Report Type: Spontaneous
  Country: US (occurrence: US)
  Receive Date: 20131106
  Receipt Date: 20131106
  Transmission Date: 20140711
  Serious: No
  Sender: FDA-Public Use
  Company Number: US-AMGEN-USASP2013071535

PATIENT
  Sex: Female

DRUGS (18)
  1. ENBREL [Suspect]
     Indication: PRODUCT USED FOR UNKNOWN INDICATION
     Dosage: UNK
     Route: 065
  2. MTX /00113801/ [Suspect]
     Indication: RHEUMATOID ARTHRITIS
     Dosage: 2.5 MG-10 MG, QWK
     Route: 048
     Dates: start: 20121210
  3. XELJANZ [Suspect]
     Indication: RHEUMATOID ARTHRITIS
     Dosage: 5 MG, BID
     Route: 048
     Dates: start: 20130614
  4. PREDNISONE [Suspect]
     Indication: PRODUCT USED FOR UNKNOWN INDICATION
     Dosage: UNK
     Route: 065
  5. VERAPAMIL HCL [Suspect]
     Indication: PRODUCT USED FOR UNKNOWN INDICATION
     Dosage: UNK
     Route: 065
  6. ATIVAN [Concomitant]
     Dosage: UNK
  7. WELLBUTRIN [Concomitant]
     Dosage: UNK
  8. FOLIC ACID [Concomitant]
     Dosage: UNK
  9. AMBIEN [Concomitant]
     Dosage: UNK
  10. PROTONIX [Concomitant]
     Dosage: UNK
  11. TRAMADOL [Concomitant]
     Dosage: UNK
  12. FLEXERIL                           /00428402/ [Concomitant]
     Dosage: UNK
  13. FLONASE                            /00908302/ [Concomitant]
     Dosage: UNK
  14. VITAMIN D3 [Concomitant]
     Dosage: UNK
  15. OMEGA 3                            /01333901/ [Concomitant]
     Dosage: UNK
  16. BABY ASPIRIN [Concomitant]
     Dosage: UNK
  17. CALCIUM [Concomitant]
     Dosage: UNK
  18. TESSALON PERLE [Concomitant]
     Dosage: UNK

REACTIONS (5)
  - Headache [Unknown]
  - Bronchitis chronic [Unknown]
  - Alopecia [Unknown]
  - Sinus disorder [Unknown]
  - Drug hypersensitivity [Unknown]
